FAERS Safety Report 11821220 (Version 1)
Quarter: 2015Q4

REPORT INFORMATION
  Report Type: Spontaneous
  Country: JP (occurrence: JP)
  Receive Date: 20151210
  Receipt Date: 20151210
  Transmission Date: 20160305
  Serious: Yes (Death, Other)
  Sender: FDA-Public Use
  Company Number: PHJP2015JP022002

PATIENT
  Age: 27 Year
  Sex: Male

DRUGS (2)
  1. PAZOPANIB [Suspect]
     Active Substance: PAZOPANIB
     Indication: SOFT TISSUE SARCOMA
  2. PAZOPANIB [Suspect]
     Active Substance: PAZOPANIB
     Indication: SYNOVIAL SARCOMA
     Dosage: UNK
     Route: 065
     Dates: start: 201211, end: 201308

REACTIONS (12)
  - Blood bilirubin increased [Unknown]
  - Decreased appetite [Unknown]
  - Pleural effusion [Unknown]
  - Vomiting [Unknown]
  - Hair colour changes [Unknown]
  - Fatigue [Unknown]
  - Diarrhoea [Unknown]
  - Death [Fatal]
  - Hypertension [Unknown]
  - Nausea [Unknown]
  - Pleural neoplasm [Unknown]
  - Weight decreased [Unknown]

NARRATIVE: CASE EVENT DATE: 201212
